FAERS Safety Report 9523942 (Version 1)
Quarter: 2013Q3

REPORT INFORMATION
  Report Type: Spontaneous
  Country: US (occurrence: None)
  Receive Date: 20130912
  Receipt Date: 20130912
  Transmission Date: 20140515
  Serious: Yes (Hospitalization)
  Sender: FDA-Public Use
  Company Number: None

PATIENT
  Age: 42 Year
  Sex: Male
  Weight: 118 kg

DRUGS (5)
  1. VILAZODONE [Suspect]
     Indication: DEPRESSION
     Dosage: PTA
  2. SEROQUEL [Concomitant]
  3. TEGRETOL [Concomitant]
  4. SUBOXONE [Concomitant]
  5. ATIVAN [Concomitant]

REACTIONS (3)
  - Convulsion [None]
  - Urinary incontinence [None]
  - Nausea [None]
